FAERS Safety Report 18324769 (Version 1)
Quarter: 2020Q3

REPORT INFORMATION
  Report Type: Spontaneous
  Country: CL (occurrence: CL)
  Receive Date: 20200928
  Receipt Date: 20200928
  Transmission Date: 20201103
  Serious: Yes (Death, Hospitalization)
  Sender: FDA-Public Use
  Company Number: CL-BAXTER-2020BAX019460

PATIENT
  Age: 52 Year
  Sex: Female
  Weight: 61 kg

DRUGS (2)
  1. DIANEAL WITH DEXTROSE [Suspect]
     Active Substance: CALCIUM CHLORIDE\DEXTROSE\MAGNESIUM CHLORIDE\SODIUM CHLORIDE\SODIUM LACTATE
     Indication: CHRONIC KIDNEY DISEASE
     Route: 033
     Dates: start: 20160323, end: 20200823
  2. DIANEAL WITH DEXTROSE [Suspect]
     Active Substance: CALCIUM CHLORIDE\DEXTROSE\MAGNESIUM CHLORIDE\SODIUM CHLORIDE\SODIUM LACTATE
     Indication: PERITONEAL DIALYSIS

REACTIONS (2)
  - Cerebrovascular accident [Unknown]
  - Cardio-respiratory arrest [Fatal]

NARRATIVE: CASE EVENT DATE: 20200819
